FAERS Safety Report 8479084-X (Version None)
Quarter: 2012Q2

REPORT INFORMATION
  Report Type: 
  Country: None (occurrence: None)
  Receive Date: 20120629
  Receipt Date: 20111013
  Transmission Date: 20120825
  Serious: Yes (Other)
  Sender: FDA-Public Use
  Company Number: US-ROCHE-1015986

PATIENT
  Sex: Male

DRUGS (7)
  1. COPEGUS [Suspect]
     Indication: HEPATITIS C
     Dosage: IN DIVIDED DOSES
     Route: 048
     Dates: start: 20110803
  2. PEGASYS [Suspect]
     Dates: start: 20120401
  3. COPEGUS [Suspect]
     Indication: HIV INFECTION
     Dates: start: 20111102
  4. PEGASYS [Suspect]
     Indication: HEPATITIS C
     Route: 058
     Dates: start: 20110803
  5. PEGASYS [Suspect]
     Indication: HIV INFECTION
     Dates: start: 20111102
  6. TRAZODONE HYDROCHLORIDE [Suspect]
     Route: 065
  7. TRAZODONE HYDROCHLORIDE [Suspect]
     Indication: PRODUCT USED FOR UNKNOWN INDICATION
     Route: 065

REACTIONS (15)
  - RESPIRATORY TRACT INFECTION [None]
  - SKELETAL INJURY [None]
  - FALL [None]
  - NEUTROPHIL COUNT DECREASED [None]
  - PLATELET COUNT DECREASED [None]
  - SKIN DISORDER [None]
  - HEAD INJURY [None]
  - SKIN ULCER [None]
  - BASAL CELL CARCINOMA [None]
  - RASH GENERALISED [None]
  - PRURITUS [None]
  - HYPOTONIA [None]
  - ECZEMA [None]
  - DECREASED APPETITE [None]
  - FATIGUE [None]
